FAERS Safety Report 19877943 (Version 1)
Quarter: 2021Q3

REPORT INFORMATION
  Report Type: Spontaneous
  Country: GB (occurrence: GB)
  Receive Date: 20210924
  Receipt Date: 20210924
  Transmission Date: 20211014
  Serious: Yes (Other)
  Sender: FDA-Public Use
  Company Number: GB-TEVA-2021-GB-1955068

PATIENT
  Age: 42 Year
  Sex: Female
  Weight: 63.42 kg

DRUGS (4)
  1. MOMETASONE FUROATE. [Concomitant]
     Active Substance: MOMETASONE FUROATE
  2. CLARITHROMYCIN. [Suspect]
     Active Substance: CLARITHROMYCIN
     Indication: TONSILLITIS
     Dosage: 1000 MILLIGRAM DAILY; 2 TABLETS
     Route: 048
     Dates: start: 20210902, end: 20210910
  3. MONTELUKAST [Concomitant]
     Active Substance: MONTELUKAST SODIUM
  4. FEXOFENADINE [Concomitant]
     Active Substance: FEXOFENADINE HYDROCHLORIDE

REACTIONS (3)
  - Mood swings [Recovered/Resolved]
  - Muscle twitching [Not Recovered/Not Resolved]
  - Palpitations [Not Recovered/Not Resolved]

NARRATIVE: CASE EVENT DATE: 20210902
